FAERS Safety Report 5745886-3 (Version None)
Quarter: 2008Q2

REPORT INFORMATION
  Report Type: 
  Country: None (occurrence: None)
  Receive Date: 20080521
  Receipt Date: 20080516
  Transmission Date: 20081010
  Serious: Yes (Hospitalization)
  Sender: FDA-Public Use
  Company Number: SE-GENENTECH-242130

PATIENT
  Sex: Male
  Weight: 87 kg

DRUGS (1)
  1. RANIBIZUMAB [Suspect]
     Indication: MACULAR DEGENERATION
     Dosage: 0.3 MG, UNK
     Route: 031
     Dates: start: 20070108

REACTIONS (1)
  - CATARACT TRAUMATIC [None]
